FAERS Safety Report 9762501 (Version 1)
Quarter: 2013Q4

REPORT INFORMATION
  Report Type: Report from Study
  Country: ES (occurrence: ES)
  Receive Date: 20131216
  Receipt Date: 20131216
  Transmission Date: 20140711
  Serious: Yes (Other)
  Sender: FDA-Public Use
  Company Number: ES-VERTEX PHARMACEUTICALS INC-2013-011803

PATIENT
  Sex: 0

DRUGS (3)
  1. TELAPREVIR [Suspect]
     Indication: HEPATITIS C
     Route: 048
  2. INTERFERON [Suspect]
     Indication: CHRONIC HEPATITIS C
  3. RIBAVIRIN [Suspect]
     Indication: CHRONIC HEPATITIS C

REACTIONS (1)
  - Skin reaction [Unknown]
